FAERS Safety Report 7114522-6 (Version None)
Quarter: 2010Q4

REPORT INFORMATION
  Report Type: 
  Country: None (occurrence: None)
  Receive Date: 20101119
  Receipt Date: 20101117
  Transmission Date: 20110411
  Serious: Yes (Hospitalization)
  Sender: FDA-Public Use
  Company Number: ES-MERCK-1011ESP00016

PATIENT
  Age: 93 Year
  Sex: Female

DRUGS (3)
  1. COZAAR [Suspect]
     Indication: HYPERTENSION
     Route: 065
     Dates: start: 20050101
  2. AMLODIPINE [Suspect]
     Indication: HYPERTENSION
     Route: 048
     Dates: start: 20050101
  3. DOXAZOSIN MESYLATE [Suspect]
     Indication: HYPERTENSION
     Route: 048
     Dates: start: 20050101

REACTIONS (4)
  - DECREASED APPETITE [None]
  - DYSKINESIA [None]
  - HYPONATRAEMIA [None]
  - VOMITING [None]
